FAERS Safety Report 6829602-X (Version None)
Quarter: 2010Q3

REPORT INFORMATION
  Report Type: 
  Country: None (occurrence: None)
  Receive Date: 20100709
  Receipt Date: 20070410
  Transmission Date: 20110219
  Serious: Yes (Other)
  Sender: FDA-Public Use
  Company Number: US-PFIZER INC-2007012153

PATIENT
  Sex: Female
  Weight: 77.1 kg

DRUGS (1)
  1. CHANTIX [Suspect]
     Indication: SMOKING CESSATION THERAPY
     Dates: start: 20061206, end: 20061215

REACTIONS (3)
  - CHEST PAIN [None]
  - PALPITATIONS [None]
  - TACHYCARDIA [None]
